FAERS Safety Report 7392096-2 (Version None)
Quarter: 2011Q2

REPORT INFORMATION
  Report Type: 
  Country: None (occurrence: None)
  Receive Date: 20110404
  Receipt Date: 20110325
  Transmission Date: 20111010
  Serious: Yes (Other)
  Sender: FDA-Public Use
  Company Number: A0773178A

PATIENT
  Age: 46 Year
  Sex: Female
  Weight: 81.8 kg

DRUGS (5)
  1. GLIPIZIDE [Concomitant]
  2. GLUCOPHAGE [Concomitant]
  3. AVANDIA [Suspect]
     Indication: DIABETES MELLITUS
     Dosage: 4MG PER DAY
     Route: 048
     Dates: end: 20061001
  4. BENAZEPRIL HYDROCHLORIDE [Concomitant]
  5. ENALAPRIL MALEATE [Concomitant]

REACTIONS (1)
  - MYOCARDIAL INFARCTION [None]
